FAERS Safety Report 4509985-6 (Version None)
Quarter: 2004Q4

REPORT INFORMATION
  Report Type: 
  Country: None (occurrence: None)
  Receive Date: 20041124
  Receipt Date: 20040914
  Transmission Date: 20050328
  Serious: Yes (Hospitalization)
  Sender: FDA-Public Use
  Company Number: FR-ABBOTT-04P-056-0273257-00

PATIENT
  Age: 59 Year
  Sex: Female

DRUGS (8)
  1. NAXY [Suspect]
     Indication: GASTRITIS
     Route: 048
     Dates: start: 20040617
  2. NAXY [Suspect]
     Indication: HELICOBACTER INFECTION
  3. OGAST CAPSULES [Suspect]
     Indication: GASTRITIS
     Route: 048
     Dates: start: 20040617, end: 20040629
  4. OGAST CAPSULES [Suspect]
     Indication: HELICOBACTER INFECTION
  5. CLAMOXYL [Suspect]
     Indication: GASTRITIS
     Route: 048
     Dates: start: 20040617
  6. CLAMOXYL [Suspect]
     Indication: HELICOBACTER INFECTION
  7. CARBAMAZEPINE [Interacting]
     Indication: DRUG USE FOR UNKNOWN INDICATION
  8. COAPROVEL [Interacting]
     Indication: DRUG USE FOR UNKNOWN INDICATION

REACTIONS (12)
  - ABDOMINAL PAIN UPPER [None]
  - ANOREXIA [None]
  - BLOOD LACTATE DEHYDROGENASE INCREASED [None]
  - BOWEL SOUNDS ABNORMAL [None]
  - DRUG INTERACTION [None]
  - FALL [None]
  - FLATULENCE [None]
  - HYPOKALAEMIA [None]
  - HYPONATRAEMIA [None]
  - NAUSEA [None]
  - UNEVALUABLE EVENT [None]
  - VOMITING [None]
